FAERS Safety Report 6235370-5 (Version None)
Quarter: 2009Q2

REPORT INFORMATION
  Report Type: 
  Country: None (occurrence: None)
  Receive Date: 20090618
  Receipt Date: 20080409
  Transmission Date: 20091009
  Serious: No
  Sender: FDA-Public Use
  Company Number: US-ASTRAZENECA-2008UW07146

PATIENT
  Age: 49 Year
  Sex: Female

DRUGS (4)
  1. ENTOCORT EC [Suspect]
     Indication: COLITIS COLLAGENOUS
     Route: 048
     Dates: start: 20080321
  2. LIBRAX [Concomitant]
  3. TOPAMAX [Concomitant]
  4. IMITREX [Concomitant]

REACTIONS (4)
  - ABDOMINAL PAIN [None]
  - ABDOMINAL PAIN UPPER [None]
  - NAUSEA [None]
  - WEIGHT DECREASED [None]
